FAERS Safety Report 21288596 (Version 1)
Quarter: 2022Q3

REPORT INFORMATION
  Report Type: Spontaneous
  Country: US (occurrence: US)
  Receive Date: 20220902
  Receipt Date: 20220902
  Transmission Date: 20221026
  Serious: No
  Sender: FDA-Public Use
  Company Number: US-ABBVIE-22K-163-4428779-00

PATIENT
  Age: 65 Year
  Sex: Female

DRUGS (2)
  1. SKYRIZI [Suspect]
     Active Substance: RISANKIZUMAB-RZAA
     Indication: Product used for unknown indication
     Route: 058
  2. SKYRIZI [Suspect]
     Active Substance: RISANKIZUMAB-RZAA
     Route: 058

REACTIONS (8)
  - Psoriasis [Unknown]
  - Peripheral swelling [Unknown]
  - Arthritis [Unknown]
  - Device difficult to use [Unknown]
  - Device issue [Unknown]
  - Erythema [Unknown]
  - Feeling hot [Unknown]
  - Device issue [Unknown]

NARRATIVE: CASE EVENT DATE: 20220510
